FAERS Safety Report 7870755-2 (Version None)
Quarter: 2011Q4

REPORT INFORMATION
  Report Type: 
  Country: None (occurrence: None)
  Receive Date: 20111027
  Receipt Date: 20111020
  Transmission Date: 20120403
  Serious: Yes (Hospitalization)
  Sender: FDA-Public Use
  Company Number: DE-GDP-11411595

PATIENT
  Sex: Female
  Weight: 87 kg

DRUGS (1)
  1. 5-AMINOLEVULINIC ACID HYDROCHLORIDE 20% [Suspect]
     Indication: SQUAMOUS CELL CARCINOMA
     Dosage: 20%, ONCE, TOPICAL
     Route: 061
     Dates: start: 20110710, end: 20110718

REACTIONS (16)
  - NUTRITIONAL CONDITION ABNORMAL [None]
  - PAIN [None]
  - OEDEMA PERIPHERAL [None]
  - SKIN DISCOLOURATION [None]
  - APPLICATION SITE VESICLES [None]
  - APPLICATION SITE SWELLING [None]
  - BLISTER [None]
  - SKIN DISORDER [None]
  - LIPASE INCREASED [None]
  - DEVICE ISSUE [None]
  - ARTHRALGIA [None]
  - GENERAL PHYSICAL HEALTH DETERIORATION [None]
  - SKIN IRRITATION [None]
  - HYPOTHERMIA [None]
  - ERYSIPELAS [None]
  - ERYTHEMA [None]
